FAERS Safety Report 23039313 (Version 1)
Quarter: 2023Q4

REPORT INFORMATION
  Report Type: Spontaneous
  Country: US (occurrence: US)
  Receive Date: 20231006
  Receipt Date: 20231006
  Transmission Date: 20240109
  Serious: Yes (Other)
  Sender: FDA-Public Use
  Company Number: US-INDIVIOR EUROPE LIMITED-INDV-137894-2023

PATIENT
  Age: 31 Year
  Sex: Male

DRUGS (5)
  1. SUBLOCADE [Suspect]
     Active Substance: BUPRENORPHINE
     Indication: Drug dependence
     Dosage: 100 MILLIGRAM, QMO
     Route: 058
     Dates: start: 202212
  2. SEROQUEL [Concomitant]
     Active Substance: QUETIAPINE FUMARATE
     Indication: Anxiety
     Dosage: 100 MILLIGRAM, UNKNOWN
     Route: 065
  3. SEROQUEL [Concomitant]
     Active Substance: QUETIAPINE FUMARATE
     Indication: Sleep disorder
  4. SEROQUEL [Concomitant]
     Active Substance: QUETIAPINE FUMARATE
     Indication: Affective disorder
  5. PRAZOSIN [Concomitant]
     Active Substance: PRAZOSIN
     Indication: Post-traumatic stress disorder
     Dosage: 2 MILLIGRAM, UNKNOWN
     Route: 065

REACTIONS (1)
  - Injection site necrosis [Not Recovered/Not Resolved]
